FAERS Safety Report 11648339 (Version 2)
Quarter: 2015Q4

REPORT INFORMATION
  Report Type: Other
  Country: IT (occurrence: IT)
  Receive Date: 20151021
  Receipt Date: 20151028
  Transmission Date: 20160304
  Serious: Yes (Other)
  Sender: FDA-Public Use
  Company Number: IT-SYMPLMED PHARMACEUTICALS-2015SYMPLMED000048

PATIENT

DRUGS (3)
  1. LOBIVON [Concomitant]
     Active Substance: NEBIVOLOL HYDROCHLORIDE
     Indication: PRODUCT USED FOR UNKNOWN INDICATION
     Dosage: 5 MG, QD
  2. OLPRESS [Concomitant]
     Active Substance: OLMESARTAN MEDOXOMIL
     Indication: PRODUCT USED FOR UNKNOWN INDICATION
     Dosage: 40 MG, QD
  3. COVERLAM [Suspect]
     Active Substance: AMLODIPINE BESYLATE\PERINDOPRIL ARGININE
     Indication: HYPERTENSION
     Dosage: 1 (10MG/10MG) TABLET, QD
     Route: 048
     Dates: start: 20141001, end: 20151008

REACTIONS (3)
  - Presyncope [Recovering/Resolving]
  - Hypertensive crisis [Recovering/Resolving]
  - Product measured potency issue [Recovering/Resolving]

NARRATIVE: CASE EVENT DATE: 20151008
